FAERS Safety Report 6732764-6 (Version None)
Quarter: 2010Q2

REPORT INFORMATION
  Report Type: 
  Country: None (occurrence: None)
  Receive Date: 20100519
  Receipt Date: 20100513
  Transmission Date: 20101027
  Serious: Yes (Hospitalization)
  Sender: FDA-Public Use
  Company Number: US-B.I. PHARMACEUTICALS,INC./RIDGEFIELD-2010-BP-05473BP

PATIENT
  Age: 74 Year
  Sex: Female

DRUGS (7)
  1. DULCOLAX [Suspect]
     Indication: CONSTIPATION
     Dosage: 50 MG
     Route: 048
  2. SEROQUEL [Suspect]
     Dosage: 50 MG
     Route: 048
     Dates: end: 20100501
  3. MORPHINE [Concomitant]
  4. HYDROCODONE [Concomitant]
  5. LYRICA [Concomitant]
  6. AMITRIPTLINE HYDROCHLORIDE TAB [Concomitant]
  7. NAMENDA [Concomitant]

REACTIONS (2)
  - FEMUR FRACTURE [None]
  - GAIT DISTURBANCE [None]
